FAERS Safety Report 24625519 (Version 2)
Quarter: 2024Q4

REPORT INFORMATION
  Report Type: Report from Study
  Country: FI (occurrence: FI)
  Receive Date: 20241115
  Receipt Date: 20241210
  Transmission Date: 20250115
  Serious: Yes (Disabling)
  Sender: ABBVIE
  Company Number: FI-ABBVIE-6006629

PATIENT
  Age: 80 Year
  Sex: Female
  Weight: 45 kg

DRUGS (10)
  1. FOSCARBIDOPA\FOSLEVODOPA [Suspect]
     Active Substance: FOSCARBIDOPA\FOSLEVODOPA
     Indication: Parkinson^s disease
     Dosage: BASE RATE 0.27 ML/H, SLOW RATE 0.25 ML/H, HIGH RATE 0.29 ML/H, ED 0.2 ML, LOADING DOSE NOT IN USE
     Route: 058
     Dates: start: 20241021
  2. carbomer (Oftagel) [Concomitant]
     Indication: Dry eye
  3. temazepam (Tenox) [Concomitant]
     Indication: Insomnia
     Dosage: TIME INTERVAL: AS NECESSARY: 0.5-1 TABLET IN THE EVENING AS NEEDED
  4. ATORVASTATIN [Concomitant]
     Active Substance: ATORVASTATIN
     Indication: Product used for unknown indication
  5. SINEMET [Concomitant]
     Active Substance: CARBIDOPA\LEVODOPA
     Indication: Product used for unknown indication
  6. paracetamol (Panadol) [Concomitant]
     Indication: Pain
     Dosage: TIME INTERVAL: AS NECESSARY
  7. hypromellose (Artelac) [Concomitant]
     Indication: Dry eye
  8. ibuprofen (Burana) [Concomitant]
     Indication: Pain
     Dosage: TIME INTERVAL: AS NECESSARY
  9. BRINTELLIX [Concomitant]
     Active Substance: VORTIOXETINE HYDROBROMIDE
     Indication: Product used for unknown indication
  10. quetiapine fumarate (Ketipinor) [Concomitant]
     Indication: Insomnia
     Dosage: TIME INTERVAL: AS NECESSARY: 1 TABLET IN THE EVENING AS NEEDED

REACTIONS (6)
  - Disability [Recovered/Resolved]
  - Sitting disability [Recovered/Resolved]
  - Movement disorder [Recovered/Resolved]
  - Device issue [Unknown]
  - Aphasia [Recovered/Resolved]
  - Device power source issue [Unknown]

NARRATIVE: CASE EVENT DATE: 20241101
